FAERS Safety Report 6070888-X (Version None)
Quarter: 2009Q1

REPORT INFORMATION
  Report Type: 
  Country: None (occurrence: None)
  Receive Date: 20090209
  Receipt Date: 20081118
  Transmission Date: 20090719
  Serious: No
  Sender: FDA-Public Use
  Company Number: A0757052A

PATIENT

DRUGS (2)
  1. PAXIL [Suspect]
     Indication: DEPRESSION
     Route: 048
  2. BENADRYL [Concomitant]

REACTIONS (1)
  - MYDRIASIS [None]
